FAERS Safety Report 8859132 (Version 2)
Quarter: 2013Q1

REPORT INFORMATION
  Report Type: Report from Study
  Country: JP (occurrence: JP)
  Receive Date: 20121024
  Receipt Date: 20130108
  Transmission Date: 20140127
  Serious: Yes (Hospitalization)
  Sender: FDA-Public Use
  Company Number: JP-009507513-2012SP029617

PATIENT
  Age: 56 Year
  Sex: Male
  Weight: 67 kg

DRUGS (14)
  1. PEGINTRON [Suspect]
     Indication: CHRONIC HEPATITIS C
     Dosage: 1.5 MICROGRAM PER KILOGRAM, QW
     Route: 058
     Dates: start: 20120327, end: 20120410
  2. PEGINTRON [Suspect]
     Dosage: 50MICROGRAM/BODY/WK
     Route: 058
     Dates: start: 20120417, end: 20120501
  3. PEGINTRON [Suspect]
     Dosage: 80 MICROGRAM/BODY/WK
     Dates: start: 20120508
  4. PEGINTRON [Suspect]
     Dosage: UNK
  5. PEGINTRON [Suspect]
     Dosage: UNK
  6. REBETOL [Suspect]
     Indication: CHRONIC HEPATITIS C
     Dosage: 800 MG, QD
     Route: 048
     Dates: start: 20120327, end: 20120409
  7. REBETOL [Suspect]
     Dosage: 200 MG, QD
     Route: 048
     Dates: start: 20120501
  8. TELAVIC [Suspect]
     Indication: CHRONIC HEPATITIS C
     Dosage: 2250 MG, QD
     Route: 048
     Dates: start: 20120327, end: 20120408
  9. NU-LOTAN [Concomitant]
     Indication: HYPERTENSION
     Dosage: 50 MG, QD
     Route: 048
     Dates: end: 20120419
  10. BASEN [Concomitant]
     Indication: DIABETES MELLITUS
     Dosage: FORMULATION: POR
     Route: 048
     Dates: end: 20120419
  11. TAKEPRON [Concomitant]
     Indication: PROPHYLAXIS
     Dosage: FORMULATION: POR
     Route: 048
     Dates: end: 20120419
  12. NORVASC [Concomitant]
     Indication: HYPERTENSION
     Dosage: FORMULATION: POR
     Route: 048
     Dates: end: 20120419
  13. AMARYL [Concomitant]
     Indication: GLYCOSURIA
     Dosage: FORMULATION: POR
     Route: 048
     Dates: end: 20120419
  14. PRIMPERAN [Concomitant]
     Dosage: FORMULATION: POR
     Route: 048
     Dates: start: 20120410

REACTIONS (2)
  - Haematuria [Recovering/Resolving]
  - Urinary tract infection [Recovering/Resolving]
